FAERS Safety Report 19041835 (Version 1)
Quarter: 2021Q1

REPORT INFORMATION
  Report Type: Spontaneous
  Country: JP (occurrence: JP)
  Receive Date: 20210322
  Receipt Date: 20210322
  Transmission Date: 20210420
  Serious: Yes (Disabling)
  Sender: FDA-Public Use
  Company Number: NVSJ2020JP004281

PATIENT
  Age: 16 Year
  Sex: Male
  Weight: 43.6 kg

DRUGS (5)
  1. ARRANON [Suspect]
     Active Substance: NELARABINE
     Dosage: 940 MG X5DAYS
     Route: 041
     Dates: start: 201912
  2. METHOTREXATE. [Suspect]
     Active Substance: METHOTREXATE
     Indication: T-CELL TYPE ACUTE LEUKAEMIA
     Dosage: 7300 MG X1DAY
     Route: 041
     Dates: start: 20200127
  3. ONCOVIN [Concomitant]
     Active Substance: VINCRISTINE SULFATE
     Indication: PRODUCT USED FOR UNKNOWN INDICATION
     Dosage: UNK
     Route: 065
  4. ARRANON [Suspect]
     Active Substance: NELARABINE
     Indication: T-CELL TYPE ACUTE LEUKAEMIA
     Dosage: 970 MG
     Route: 041
     Dates: start: 201909
  5. METHOTREXATE. [Suspect]
     Active Substance: METHOTREXATE
     Dosage: 7200 MG X1DAY
     Route: 041
     Dates: start: 20200227

REACTIONS (5)
  - Dysuria [Unknown]
  - Magnetic resonance imaging spinal abnormal [Unknown]
  - Hypoaesthesia [Unknown]
  - Spinal cord disorder [Not Recovered/Not Resolved]
  - Sensory disturbance [Unknown]

NARRATIVE: CASE EVENT DATE: 202004
